FAERS Safety Report 12682589 (Version 1)
Quarter: 2016Q3

REPORT INFORMATION
  Report Type: Spontaneous
  Country: NZ (occurrence: NZ)
  Receive Date: 20160825
  Receipt Date: 20160825
  Transmission Date: 20161109
  Serious: Yes (Hospitalization)
  Sender: FDA-Public Use
  Company Number: NZ-BAXTER-2016BAX043152

PATIENT
  Age: 55 Year
  Sex: Male

DRUGS (9)
  1. [PSS GPN] CISPLATIN DBL [Suspect]
     Active Substance: CISPLATIN
     Indication: SQUAMOUS CELL CARCINOMA
     Route: 042
     Dates: start: 20160704, end: 20160725
  2. CYCLIZINE [Suspect]
     Active Substance: CYCLIZINE
     Indication: NAUSEA
     Route: 048
     Dates: end: 20160725
  3. PARACETAMOL [Suspect]
     Active Substance: ACETAMINOPHEN
     Indication: ANALGESIC THERAPY
     Route: 048
     Dates: end: 20160725
  4. MORPHINE [Suspect]
     Active Substance: MORPHINE
     Indication: ANALGESIC THERAPY
     Route: 048
     Dates: end: 20160725
  5. SODIUM CHLORIDE, 0.9%, SOLUTION FOR INFUSION [Suspect]
     Active Substance: SODIUM CHLORIDE
     Indication: MEDICATION DILUTION
     Route: 042
     Dates: start: 20160704, end: 20160725
  6. LAXSOL [Suspect]
     Active Substance: DOCUSATE SODIUM\SENNOSIDES A AND B
     Indication: CONSTIPATION PROPHYLAXIS
     Dosage: 6 TABLETS
     Route: 048
     Dates: end: 20160725
  7. CYCLIZINE [Suspect]
     Active Substance: CYCLIZINE
     Indication: VOMITING
  8. DOMPERIDONE [Suspect]
     Active Substance: DOMPERIDONE
     Indication: NAUSEA
     Route: 048
     Dates: end: 20160725
  9. DOMPERIDONE [Suspect]
     Active Substance: DOMPERIDONE
     Indication: VOMITING

REACTIONS (5)
  - Vomiting [Unknown]
  - Pyrexia [Recovered/Resolved]
  - Nausea [Unknown]
  - Headache [Recovered/Resolved]
  - Rash [Recovered/Resolved]

NARRATIVE: CASE EVENT DATE: 20160725
